FAERS Safety Report 23032850 (Version 1)
Quarter: 2023Q4

REPORT INFORMATION
  Report Type: Spontaneous
  Country: US (occurrence: US)
  Receive Date: 20231005
  Receipt Date: 20231005
  Transmission Date: 20240110
  Serious: Yes (Hospitalization)
  Sender: FDA-Public Use
  Company Number: US-MYLANLABS-2023M1104802

PATIENT
  Age: 66 Year
  Sex: Female

DRUGS (6)
  1. PACLITAXEL [Suspect]
     Active Substance: PACLITAXEL
     Indication: Endometrial cancer stage I
     Dosage: UNK
     Route: 065
  2. PACLITAXEL [Suspect]
     Active Substance: PACLITAXEL
     Dosage: UNK UNK, QW
     Route: 065
  3. TRASTUZUMAB [Suspect]
     Active Substance: TRASTUZUMAB
     Indication: Endometrial cancer stage I
     Dosage: UNK
     Route: 065
  4. LENVATINIB [Concomitant]
     Active Substance: LENVATINIB
     Indication: Endometrial cancer stage I
     Dosage: UNK
     Route: 065
  5. LENVATINIB [Concomitant]
     Active Substance: LENVATINIB
     Dosage: UNK, THERAPY DISCONTINUED, RE-INITIATED THEN DISCONTINUED
     Route: 065
  6. PEMBROLIZUMAB [Concomitant]
     Active Substance: PEMBROLIZUMAB
     Indication: Endometrial cancer stage I
     Dosage: UNK
     Route: 065

REACTIONS (1)
  - Drug ineffective [Unknown]
